FAERS Safety Report 17864761 (Version 1)
Quarter: 2020Q2

REPORT INFORMATION
  Report Type: Spontaneous
  Country: US (occurrence: US)
  Receive Date: 20200605
  Receipt Date: 20200605
  Transmission Date: 20200714
  Serious: Yes (Other)
  Sender: FDA-Public Use
  Company Number: NVSC2020US156913

PATIENT
  Age: 57 Year
  Sex: Male

DRUGS (1)
  1. ROPINIROLE. [Suspect]
     Active Substance: ROPINIROLE
     Indication: RESTLESS ARM SYNDROME
     Dosage: 0.25 MG, QD
     Route: 048

REACTIONS (3)
  - Liver function test increased [Recovering/Resolving]
  - Hepatotoxicity [Unknown]
  - Product use in unapproved indication [Unknown]
